FAERS Safety Report 16892747 (Version 2)
Quarter: 2021Q3

REPORT INFORMATION
  Report Type: Spontaneous
  Country: US (occurrence: US)
  Receive Date: 20191007
  Receipt Date: 20210809
  Transmission Date: 20211014
  Serious: No
  Sender: FDA-Public Use
  Company Number: US-VIFOR (INTERNATIONAL) INC.-VIT-2019-08832

PATIENT
  Age: 68 Year
  Sex: Male

DRUGS (9)
  1. LOVAZA [Concomitant]
     Active Substance: OMEGA-3-ACID ETHYL ESTERS
  2. PARICALCITOL. [Concomitant]
     Active Substance: PARICALCITOL
  3. CARVEDILOL. [Concomitant]
     Active Substance: CARVEDILOL
  4. FAMOTIDINE. [Concomitant]
     Active Substance: FAMOTIDINE
  5. HUMALOG [Concomitant]
     Active Substance: INSULIN LISPRO
  6. AMLODIPINE [Concomitant]
     Active Substance: AMLODIPINE BESYLATE
  7. TRADJENTA [Concomitant]
     Active Substance: LINAGLIPTIN
  8. VELTASSA [Suspect]
     Active Substance: PATIROMER
     Indication: HYPERKALAEMIA
     Route: 048
     Dates: start: 20161103
  9. TAMSULOSIN [Concomitant]
     Active Substance: TAMSULOSIN

REACTIONS (3)
  - Product dose omission issue [Not Recovered/Not Resolved]
  - Constipation [Not Recovered/Not Resolved]
  - Colonoscopy [Not Recovered/Not Resolved]

NARRATIVE: CASE EVENT DATE: 20190906
